FAERS Safety Report 7744667-9 (Version None)
Quarter: 2011Q3

REPORT INFORMATION
  Report Type: 
  Country: None (occurrence: None)
  Receive Date: 20110912
  Receipt Date: 20110907
  Transmission Date: 20111222
  Serious: Yes (Death, Other)
  Sender: FDA-Public Use
  Company Number: PHEH2011US01430

PATIENT
  Sex: Female

DRUGS (1)
  1. EXJADE [Suspect]
     Dosage: 500 MG, Q12H
     Route: 048
     Dates: start: 20110807

REACTIONS (5)
  - FULL BLOOD COUNT DECREASED [None]
  - DYSPEPSIA [None]
  - DEATH [None]
  - DIARRHOEA [None]
  - PYREXIA [None]
